FAERS Safety Report 6455824-6 (Version None)
Quarter: 2009Q4

REPORT INFORMATION
  Report Type: 
  Country: None (occurrence: None)
  Receive Date: 20091125
  Receipt Date: 20090903
  Transmission Date: 20100525
  Serious: No
  Sender: FDA-Public Use
  Company Number: US-ABBOTT-09P-163-0595911-00

PATIENT
  Sex: Female
  Weight: 129.84 kg

DRUGS (13)
  1. SIMCOR [Suspect]
     Indication: HIGH DENSITY LIPOPROTEIN DECREASED
     Dosage: 1 - 500/20 MG TAB DAILY
     Route: 048
     Dates: start: 20080901, end: 20090615
  2. SIMCOR [Suspect]
     Indication: LOW DENSITY LIPOPROTEIN INCREASED
     Dosage: 2 - 500/20 MG TAB DAILY
     Route: 048
     Dates: start: 20090616
  3. SIMCOR [Suspect]
     Indication: BLOOD TRIGLYCERIDES INCREASED
  4. LOVAZA [Concomitant]
     Indication: BLOOD CHOLESTEROL INCREASED
     Route: 048
  5. ACTOSE PLUS METFORMIN [Concomitant]
     Indication: TYPE 2 DIABETES MELLITUS
     Dosage: 1 - 15/500 MG TAB TWICE DAILY
     Route: 048
  6. BYETTA [Concomitant]
     Indication: TYPE 2 DIABETES MELLITUS
     Route: 058
  7. LYRICA [Concomitant]
     Indication: NEUROPATHY PERIPHERAL
     Route: 048
  8. ZYLOPRIM [Concomitant]
     Indication: NEPHROLITHIASIS
     Route: 048
  9. ZYLOPRIM [Concomitant]
     Indication: PROPHYLAXIS
  10. LISINOPRIL [Concomitant]
     Indication: HYPERTENSION
     Dosage: 1 - 10/12.5 MG TAB DAILY
     Route: 048
  11. PAXIL [Concomitant]
     Indication: DEPRESSION
     Route: 048
  12. PROVIGIL [Concomitant]
     Indication: NARCOLEPSY
     Route: 048
  13. RITALIN [Concomitant]
     Indication: NARCOLEPSY
     Route: 048

REACTIONS (3)
  - DRUG EFFECT DECREASED [None]
  - FLUSHING [None]
  - PRURITUS [None]
